FAERS Safety Report 19178216 (Version 1)
Quarter: 2021Q2

REPORT INFORMATION
  Report Type: Spontaneous
  Country: US (occurrence: US)
  Receive Date: 20210426
  Receipt Date: 20210426
  Transmission Date: 20210717
  Serious: Yes (Hospitalization, Other)
  Sender: FDA-Public Use
  Company Number: US-CIPLA LTD.-2021US03009

PATIENT

DRUGS (4)
  1. PFIZER?BIONTECH COVID?19 VACCINE [Interacting]
     Active Substance: TOZINAMERAN
     Indication: COVID-19 IMMUNISATION
     Dosage: UNK, FIRST DOSE
     Route: 065
     Dates: start: 20210324
  2. WARFARIN [Interacting]
     Active Substance: WARFARIN
     Dosage: 3.5MG DAILY ON M, W, AND F, AND 4MG DAILY ON TU, TH, S, AND S
     Route: 048
     Dates: start: 20210331
  3. WARFARIN [Interacting]
     Active Substance: WARFARIN
     Dosage: 7.5 MG A DAY FOR 3 DAYS
     Route: 048
     Dates: start: 202104
  4. WARFARIN [Suspect]
     Active Substance: WARFARIN
     Indication: INTERNATIONAL NORMALISED RATIO ABNORMAL
     Dosage: UNK
     Route: 065

REACTIONS (3)
  - International normalised ratio decreased [Recovered/Resolved]
  - Drug interaction [Unknown]
  - Cardiogenic shock [Recovered/Resolved]

NARRATIVE: CASE EVENT DATE: 20210325
